FAERS Safety Report 7054672-6 (Version None)
Quarter: 2010Q4

REPORT INFORMATION
  Report Type: 
  Country: None (occurrence: None)
  Receive Date: 20101020
  Receipt Date: 20101011
  Transmission Date: 20110411
  Serious: Yes (Other)
  Sender: FDA-Public Use
  Company Number: US-PFIZER INC-2010099762

PATIENT
  Sex: Female

DRUGS (14)
  1. CHANTIX [Suspect]
     Indication: SMOKING CESSATION THERAPY
     Dosage: 1 MG, UNK
     Dates: start: 20070901, end: 20080101
  2. CHANTIX [Suspect]
     Dosage: 1 MG, UNK
     Dates: start: 20080601, end: 20080901
  3. ALBUTEROL [Concomitant]
     Indication: UPPER RESPIRATORY TRACT INFECTION
     Dosage: UNK
     Dates: start: 20020901
  4. ALBUTEROL [Concomitant]
     Indication: BRONCHITIS
  5. ALBUTEROL [Concomitant]
     Indication: ASTHMA
  6. ALBUTEROL [Concomitant]
     Indication: CHRONIC OBSTRUCTIVE PULMONARY DISEASE
  7. PROVENTIL /OLD FORM/ [Concomitant]
     Indication: UPPER RESPIRATORY TRACT INFECTION
     Dosage: UNK
     Dates: start: 20020901
  8. PROVENTIL /OLD FORM/ [Concomitant]
     Indication: BRONCHITIS
  9. PROVENTIL /OLD FORM/ [Concomitant]
     Indication: ASTHMA
  10. PROVENTIL /OLD FORM/ [Concomitant]
     Indication: CHRONIC OBSTRUCTIVE PULMONARY DISEASE
  11. PROAIR HFA [Concomitant]
     Indication: UPPER RESPIRATORY TRACT INFECTION
     Dosage: UNK
     Dates: start: 20020901
  12. PROAIR HFA [Concomitant]
     Indication: BRONCHITIS
  13. PROAIR HFA [Concomitant]
     Indication: ASTHMA
  14. PROAIR HFA [Concomitant]
     Indication: CHRONIC OBSTRUCTIVE PULMONARY DISEASE

REACTIONS (13)
  - AGGRESSION [None]
  - AGORAPHOBIA [None]
  - ALCOHOLIC [None]
  - ANXIETY [None]
  - DEPRESSION [None]
  - FEELINGS OF WORTHLESSNESS [None]
  - HALLUCINATION, VISUAL [None]
  - HOMICIDAL IDEATION [None]
  - MENTAL DISORDER [None]
  - MULTIPLE INJURIES [None]
  - PARANOIA [None]
  - PERSONALITY DISORDER [None]
  - SUICIDAL BEHAVIOUR [None]
